FAERS Safety Report 23864631 (Version 1)
Quarter: 2024Q2

REPORT INFORMATION
  Report Type: Spontaneous
  Country: US (occurrence: US)
  Receive Date: 20240516
  Receipt Date: 20240516
  Transmission Date: 20240716
  Serious: No
  Sender: FDA-Public Use
  Company Number: US-SA-SAC20240513000958

PATIENT
  Age: 54 Year
  Sex: Female

DRUGS (10)
  1. DUPIXENT [Suspect]
     Active Substance: DUPILUMAB
     Indication: Dermatitis atopic
     Dosage: 300MG SUBCUTANEOUSLY EVERY 14 DAYS
     Route: 058
     Dates: start: 20231009
  2. AMLODIPINE [Concomitant]
     Active Substance: AMLODIPINE BESYLATE
  3. AZELASTINE [Concomitant]
     Active Substance: AZELASTINE\AZELASTINE HYDROCHLORIDE
     Dosage: H SOL 137MCG/S
  4. CLOBETASOL [Concomitant]
     Active Substance: CLOBETASOL
  5. DICLOFENAC [Concomitant]
     Active Substance: DICLOFENAC
  6. ELIDEL [Concomitant]
     Active Substance: PIMECROLIMUS
  7. FOLIC ACID [Concomitant]
     Active Substance: FOLIC ACID
  8. LISINOPRIL [Concomitant]
     Active Substance: LISINOPRIL
  9. PIMECROLIMUS [Concomitant]
     Active Substance: PIMECROLIMUS
  10. ROSUVASTATIN [Concomitant]
     Active Substance: ROSUVASTATIN

REACTIONS (1)
  - Sleep disorder [Recovering/Resolving]
